FAERS Safety Report 8246234-X (Version None)
Quarter: 2012Q1

REPORT INFORMATION
  Report Type: 
  Country: None (occurrence: None)
  Receive Date: 20120330
  Receipt Date: 20110103
  Transmission Date: 20120608
  Serious: No
  Sender: FDA-Public Use
  Company Number: US-MYLANLABS-2011S1000379

PATIENT
  Age: 73 Year
  Sex: Female

DRUGS (4)
  1. TRIAMTERENE AND HYDROCHLOROTHIAZIDE [Concomitant]
  2. CYCLOBENZAPRINE HCL [Concomitant]
  3. NABUMETONE [Concomitant]
  4. ALBUTEROL SULATE [Suspect]
     Indication: CHRONIC OBSTRUCTIVE PULMONARY DISEASE

REACTIONS (3)
  - ORAL DISCOMFORT [None]
  - DYSPNOEA [None]
  - THROAT IRRITATION [None]
